FAERS Safety Report 21821272 (Version 1)
Quarter: 2023Q1

REPORT INFORMATION
  Report Type: Spontaneous
  Country: US (occurrence: US)
  Receive Date: 20230105
  Receipt Date: 20230105
  Transmission Date: 20230418
  Serious: Yes (Other)
  Sender: FDA-Public Use
  Company Number: US-CLOVIS ONCOLOGY-CLO-2022-001396

PATIENT
  Age: 66 Year
  Sex: Female

DRUGS (9)
  1. RUBRACA [Suspect]
     Active Substance: RUCAPARIB CAMSYLATE
     Indication: Ovarian cancer
     Dosage: 500 MILLIGRAM, BID
  2. ALPHA LIPOIC ACID [Concomitant]
     Active Substance: .ALPHA.-LIPOIC ACID
     Indication: Product used for unknown indication
     Dosage: 600 MILLIGRAM, QD
  3. ARMOUR THYROID [Concomitant]
     Active Substance: THYROID, PORCINE
     Indication: Product used for unknown indication
     Dosage: 30 MILLIGRAM, QD
     Route: 048
  4. VITAMIN B COMPLEX [Concomitant]
     Active Substance: CYANOCOBALAMIN\DEXPANTHENOL\NIACINAMIDE\PYRIDOXINE HYDROCHLORIDE\RIBOFLAVIN 5^-PHOSPHATE SODIUM\THIA
     Indication: Product used for unknown indication
     Dosage: 1 CAPSULE DAILY WITH FOOD
     Route: 048
  5. VITAMIN D3 [Concomitant]
     Active Substance: CHOLECALCIFEROL
     Indication: Product used for unknown indication
     Dosage: 5000 UNITS ONCE DAILY
     Route: 048
  6. LIDOCAINE\PRILOCAINE [Concomitant]
     Active Substance: LIDOCAINE\PRILOCAINE
     Indication: Product used for unknown indication
     Dosage: APPLY TO AFFECTED AREA AS NEEDED
     Route: 061
  7. MAGNESIUM [Concomitant]
     Active Substance: MAGNESIUM
     Indication: Product used for unknown indication
     Dosage: UNK
     Route: 048
  8. VITAMIN B6 [Concomitant]
     Active Substance: PYRIDOXINE HYDROCHLORIDE
     Indication: Product used for unknown indication
     Dosage: 100 MG TABLETS
  9. SERTRALINE [Concomitant]
     Active Substance: SERTRALINE HYDROCHLORIDE
     Indication: Product used for unknown indication
     Dosage: 100 MILLIGRAM, QD
     Route: 048

REACTIONS (20)
  - Malignant melanoma [Unknown]
  - Nephrolithiasis [Unknown]
  - Autism spectrum disorder [Unknown]
  - Major depression [Unknown]
  - Neutropenia [Unknown]
  - Gastrointestinal polyp [Unknown]
  - Malnutrition [Unknown]
  - Hypercalcaemia [Unknown]
  - Hypernatriuria [Unknown]
  - Hypercalciuria [Unknown]
  - Back pain [Unknown]
  - Sciatica [Unknown]
  - Arthralgia [Unknown]
  - Gait disturbance [Unknown]
  - Osteopenia [Unknown]
  - Exposure to toxic agent [Unknown]
  - Hyperoxaluria [Unknown]
  - Anxiety [Unknown]
  - Adjustment disorder with mixed anxiety and depressed mood [Unknown]
  - Constipation [Unknown]

NARRATIVE: CASE EVENT DATE: 20191001
